FAERS Safety Report 24014075 (Version 1)
Quarter: 2024Q2

REPORT INFORMATION
  Report Type: Report from Study
  Country: DE (occurrence: DE)
  Receive Date: 20240626
  Receipt Date: 20240626
  Transmission Date: 20240716
  Serious: Yes (Hospitalization)
  Sender: FDA-Public Use
  Company Number: DE-ABBVIE-5749477

PATIENT
  Sex: Male

DRUGS (23)
  1. CARBIDOPA\LEVODOPA [Suspect]
     Active Substance: CARBIDOPA\LEVODOPA
     Indication: Parkinson^s disease
     Dosage: DAILY RATE: 2.5 ML/H; CRN: 1.2 ML/H; ED: 0.5ML/H
     Route: 050
     Dates: start: 20240524
  2. CARBIDOPA\LEVODOPA [Suspect]
     Active Substance: CARBIDOPA\LEVODOPA
     Dosage: MD: 2.5ML; CRD: 1.7ML/H; CRN: 1.7ML/H; ED: 0.5ML, LAST ADMIN DATE: DEC 2023
     Route: 050
     Dates: start: 20231207
  3. CARBIDOPA\LEVODOPA [Suspect]
     Active Substance: CARBIDOPA\LEVODOPA
     Dosage: MD: 2.5ML; CRD: 1.7ML/H; CRN: 1.7ML/H; ED: 0.5ML
     Route: 050
     Dates: start: 20231211
  4. CARBIDOPA\LEVODOPA [Suspect]
     Active Substance: CARBIDOPA\LEVODOPA
     Dosage: DAILY RATE: 2 ML/H; CRN: 1.2 ML/H; ED: 0.5ML/H
     Route: 050
     Dates: start: 20240523, end: 20240523
  5. ESCITALOPRAM [Concomitant]
     Active Substance: ESCITALOPRAM OXALATE
     Indication: Product used for unknown indication
     Dosage: FORM STRENGTH: 10MG, 0.5 DOSAGE FORM
     Route: 048
     Dates: start: 20240503
  6. LACTULOSE [Concomitant]
     Active Substance: LACTULOSE
     Indication: Product used for unknown indication
     Dosage: FORM STRENGTH: 667 MG, 10 ML- 10 ML- 10 ML
     Route: 048
     Dates: start: 20240523
  7. FOLIC ACID [Concomitant]
     Active Substance: FOLIC ACID
     Indication: Folate deficiency
     Dosage: RATIOPHARM FORM STRENGTH: 5 MG
     Route: 048
     Dates: start: 20240524
  8. VITAMIN B6-RATIOPHARM [Concomitant]
     Indication: Vitamin B6 deficiency
     Dosage: FORM STRENGTH: 40 MG, 0.5 DOSAGE FORM
     Route: 048
     Dates: start: 20240524
  9. NEBIVOLOL AL [Concomitant]
     Indication: Product used for unknown indication
     Dosage: FORM STRENGTH: 5MG, 0.5 DOSAGE FORM
     Route: 048
     Dates: start: 20240503
  10. QUETIAPINE [Concomitant]
     Active Substance: QUETIAPINE
     Indication: Restlessness
     Dosage: FORM STRENGTH: 25 MG, 0.5 DOSAGE FORM
     Route: 048
     Dates: start: 20240523
  11. CETIRIZINE HYDROCHLORIDE [Concomitant]
     Active Substance: CETIRIZINE HYDROCHLORIDE
     Indication: Hypersensitivity
     Dosage: FORM STRENGTH: 10MG
     Route: 048
     Dates: start: 20240523
  12. ASPIRIN [Concomitant]
     Active Substance: ASPIRIN
     Indication: Product used for unknown indication
     Dosage: FORM STRENGTH: 100 MG
     Route: 048
     Dates: start: 20240503
  13. PANTOPRAZOLE [Concomitant]
     Active Substance: PANTOPRAZOLE
     Indication: Product used for unknown indication
     Dosage: FORM STRENGTH: 20 MG
     Route: 048
     Dates: start: 20240503
  14. ACETYLCYSTEINE [Concomitant]
     Active Substance: ACETYLCYSTEINE
     Indication: Product used for unknown indication
     Dosage: FORM STRENGTH: 600 MG
     Route: 048
     Dates: start: 20240524
  15. CANDESARTAN [Concomitant]
     Active Substance: CANDESARTAN
     Indication: Product used for unknown indication
     Dosage: FORM STRENGTH: 32 MG
     Route: 048
     Dates: start: 20240503
  16. METAMIZOLE [Concomitant]
     Active Substance: METAMIZOLE
     Indication: Pain
     Dosage: FORM STRENGTH: 500 MG
     Route: 048
     Dates: start: 20240503
  17. ATORVASTATIN [Concomitant]
     Active Substance: ATORVASTATIN
     Indication: Product used for unknown indication
     Dosage: FORM STRENGTH: 20 MG
     Route: 048
     Dates: start: 20240502
  18. IBUPROFEN [Concomitant]
     Active Substance: IBUPROFEN
     Indication: Pain
     Dosage: FORM STRENGTH: 600 MG
     Route: 048
     Dates: start: 20240530
  19. B12 ANKERMANN [Concomitant]
     Indication: Vitamin B12 deficiency
     Dosage: FORM STRENGTH: 1000 MG
     Route: 048
     Dates: start: 20240524
  20. AMLODIPINE [Concomitant]
     Active Substance: AMLODIPINE BESYLATE
     Indication: Product used for unknown indication
     Dosage: FORM STRENGTH: 5 MG
     Route: 048
     Dates: start: 20240503
  21. PROMETHAZINE [Concomitant]
     Active Substance: PROMETHAZINE HYDROCHLORIDE
     Indication: Restlessness
     Dosage: FORM STRENGTH: 20 MG/ML
     Route: 048
     Dates: start: 20240502, end: 2024
  22. TORSEMIDE [Concomitant]
     Active Substance: TORSEMIDE
     Indication: Product used for unknown indication
     Dosage: FORM STRENGTH: 5 MG
     Route: 048
     Dates: start: 20240503
  23. TAMSULOSIN [Concomitant]
     Active Substance: TAMSULOSIN
     Indication: Product used for unknown indication
     Dosage: FORM STRENGTH: 0.4 MG
     Route: 048
     Dates: start: 20240502

REACTIONS (18)
  - Device issue [Recovered/Resolved]
  - Incorrect route of product administration [Unknown]
  - Balance disorder [Unknown]
  - Muscle rigidity [Unknown]
  - Arthralgia [Recovering/Resolving]
  - Nocturia [Unknown]
  - Fall [Unknown]
  - Dysarthria [Unknown]
  - Hyporeflexia [Unknown]
  - Flank pain [Recovering/Resolving]
  - Parkinsonism [Unknown]
  - Fine motor skill dysfunction [Unknown]
  - Constipation [Unknown]
  - Gait disturbance [Unknown]
  - Dysdiadochokinesis [Unknown]
  - Device occlusion [Recovered/Resolved]
  - Mobility decreased [Recovering/Resolving]
  - Freezing phenomenon [Unknown]

NARRATIVE: CASE EVENT DATE: 20240101
